FAERS Safety Report 5143108-8 (Version None)
Quarter: 2006Q4

REPORT INFORMATION
  Report Type: 
  Country: None (occurrence: None)
  Receive Date: 20061103
  Receipt Date: 20060710
  Transmission Date: 20070319
  Serious: Yes (Other)
  Sender: FDA-Public Use
  Company Number: PHNU2006DE02480

PATIENT
  Age: 20 Year
  Sex: Male

DRUGS (2)
  1. LEPONEX [Suspect]
     Dosage: UP TO 150 MG/DAY
     Route: 048
     Dates: start: 20030101, end: 20060101
  2. LEPONEX [Suspect]
     Dosage: 220 MG/DAY
     Route: 048
     Dates: start: 20020101

REACTIONS (5)
  - ANAEMIA [None]
  - BONE MARROW FAILURE [None]
  - LEUKOPENIA [None]
  - NEUTROPENIA [None]
  - THROMBOCYTOPENIA [None]
